FAERS Safety Report 8613997-0 (Version None)
Quarter: 2012Q3

REPORT INFORMATION
  Report Type: 
  Country: None (occurrence: None)
  Receive Date: 20120823
  Receipt Date: 20120820
  Transmission Date: 20120928
  Serious: No
  Sender: FDA-Public Use
  Company Number: US-PFIZER INC-2012203988

PATIENT
  Age: 65 Year
  Sex: Male

DRUGS (1)
  1. FLECTOR [Suspect]
     Indication: BACK PAIN
     Dosage: 1.3 %, ONE PATCH EVERY 12 HOURS
     Dates: start: 20120801

REACTIONS (2)
  - PRODUCT ADHESION ISSUE [None]
  - DRUG INEFFECTIVE [None]
